FAERS Safety Report 4755067-8 (Version None)
Quarter: 2005Q3

REPORT INFORMATION
  Report Type: 
  Country: None (occurrence: None)
  Receive Date: 20050825
  Receipt Date: 20050811
  Transmission Date: 20060218
  Serious: Yes (Other)
  Sender: FDA-Public Use
  Company Number: SGB1-2005-00358

PATIENT
  Age: 7 Year
  Sex: Female

DRUGS (1)
  1. FOSRENOL [Suspect]
     Indication: BLOOD PHOSPHORUS ABNORMAL

REACTIONS (2)
  - BLOOD PHOSPHORUS INCREASED [None]
  - DRUG INEFFECTIVE [None]
